FAERS Safety Report 14708677 (Version 3)
Quarter: 2018Q2

REPORT INFORMATION
  Report Type: Report from Study
  Country: None (occurrence: US)
  Receive Date: 20180403
  Receipt Date: 20180529
  Transmission Date: 20180711
  Serious: Yes (Other)
  Sender: FDA-Public Use
  Company Number: US-ABBVIE-18K-163-2282013-00

PATIENT
  Age: 75 Year
  Sex: Male

DRUGS (2)
  1. HUMIRA [Suspect]
     Active Substance: ADALIMUMAB
     Indication: CROHN^S DISEASE
     Route: 058
     Dates: end: 2018
  2. HUMIRA [Suspect]
     Active Substance: ADALIMUMAB
     Route: 058
     Dates: start: 201803

REACTIONS (12)
  - Loss of consciousness [Unknown]
  - Fall [Unknown]
  - Injection site pain [Unknown]
  - Injection site bruising [Unknown]
  - Gastritis [Unknown]
  - Fatigue [Unknown]
  - Vitreous floaters [Unknown]
  - Injection site swelling [Unknown]
  - Colitis [Unknown]
  - Gastric disorder [Unknown]
  - Skin discolouration [Unknown]
  - Wrong technique in product usage process [Unknown]

NARRATIVE: CASE EVENT DATE: 201803
